FAERS Safety Report 13095254 (Version 1)
Quarter: 2017Q1

REPORT INFORMATION
  Report Type: Spontaneous
  Country: US (occurrence: US)
  Receive Date: 20170107
  Receipt Date: 20170107
  Transmission Date: 20170428
  Serious: No
  Sender: FDA-Public Use
  Company Number: US-DRREDDYS-DRL/USA/16/0078180

PATIENT
  Age: 67 Year
  Sex: Female
  Weight: 71.2 kg

DRUGS (2)
  1. HABITROL [Suspect]
     Active Substance: NICOTINE
     Indication: SMOKING CESSATION THERAPY
     Route: 061
     Dates: start: 201508, end: 201508
  2. HABITROL [Suspect]
     Active Substance: NICOTINE
     Route: 061
     Dates: start: 20160315

REACTIONS (3)
  - Treatment noncompliance [Unknown]
  - Nicotine dependence [Recovering/Resolving]
  - Product quality issue [Unknown]

NARRATIVE: CASE EVENT DATE: 201508
